FAERS Safety Report 24962147 (Version 1)
Quarter: 2025Q1

REPORT INFORMATION
  Report Type: Spontaneous
  Country: US (occurrence: US)
  Receive Date: 20250212
  Receipt Date: 20250212
  Transmission Date: 20250409
  Serious: No
  Sender: LUNDBECK
  Company Number: US-LUNDBECK-DKLU4010594

PATIENT

DRUGS (1)
  1. NORTHERA [Suspect]
     Active Substance: DROXIDOPA
     Indication: Illness
     Dosage: 300 MILLIGRAM
     Route: 048
     Dates: start: 2022

REACTIONS (3)
  - Presyncope [Unknown]
  - Chest pain [Unknown]
  - Malaise [Unknown]
